FAERS Safety Report 14115512 (Version 2)
Quarter: 2017Q4

REPORT INFORMATION
  Report Type: Other
  Country: GB (occurrence: GB)
  Receive Date: 20171023
  Receipt Date: 20171117
  Transmission Date: 20180321
  Serious: Yes (Hospitalization)
  Sender: FDA-Public Use
  Company Number: GB-HERITAGE PHARMACEUTICALS-2017HTG00312

PATIENT
  Age: 68 Year
  Sex: Female

DRUGS (11)
  1. VERAPAMIL HYDROCHLORIDE. [Suspect]
     Active Substance: VERAPAMIL HYDROCHLORIDE
     Indication: CHEST PAIN
     Dosage: 40 MG, 3X/DAY
     Route: 048
     Dates: start: 20170906, end: 20170909
  2. METHOTREXATE. [Concomitant]
     Active Substance: METHOTREXATE
     Dosage: 25 MG, UNK
  3. ZAPAIN [Concomitant]
     Active Substance: ACETAMINOPHEN\CODEINE PHOSPHATE
     Dosage: 30 MG/500 MG
  4. VALSARTAN. [Concomitant]
     Active Substance: VALSARTAN
     Dosage: 40 MG, 1X/DAY
  5. FOLIC ACID. [Concomitant]
     Active Substance: FOLIC ACID
     Dosage: 5 MG, 1X/DAY
  6. SPIRIVA [Concomitant]
     Active Substance: TIOTROPIUM BROMIDE MONOHYDRATE
     Dosage: 18 MG, 1X/DAY
     Route: 055
  7. VERAPAMIL HYDROCHLORIDE. [Suspect]
     Active Substance: VERAPAMIL HYDROCHLORIDE
     Indication: CHEST PAIN
  8. ASPIRIN. [Concomitant]
     Active Substance: ASPIRIN
  9. AMLODIPINE [Concomitant]
     Active Substance: AMLODIPINE BESYLATE
  10. BISOPROLOL FUMARATE. [Concomitant]
     Active Substance: BISOPROLOL FUMARATE
  11. VERAPAMIL HYDROCHLORIDE. [Suspect]
     Active Substance: VERAPAMIL HYDROCHLORIDE
     Indication: HYPERTENSION
     Dosage: 40 MG, AS NEEDED
     Route: 048
     Dates: start: 20170906, end: 20170909

REACTIONS (3)
  - Chest discomfort [Recovered/Resolved]
  - Tachycardia [Recovered/Resolved]
  - Drug ineffective [Recovered/Resolved]

NARRATIVE: CASE EVENT DATE: 20170908
